FAERS Safety Report 6867365-2 (Version None)
Quarter: 2010Q2

REPORT INFORMATION
  Report Type: 
  Country: None (occurrence: None)
  Receive Date: 20100610
  Receipt Date: 20100217
  Transmission Date: 20101027
  Serious: No
  Sender: FDA-Public Use
  Company Number: 2010SP010749

PATIENT
  Age: 22 Year
  Sex: Female

DRUGS (4)
  1. SAPHRIS [Suspect]
     Indication: DEPRESSION
     Dosage: 5 MG; BID; SL
     Route: 060
     Dates: start: 20100217, end: 20100217
  2. PRISTIQ [Concomitant]
  3. MOBIC [Concomitant]
  4. KLONOPIN [Concomitant]

REACTIONS (1)
  - VOMITING [None]
